FAERS Safety Report 14858809 (Version 3)
Quarter: 2021Q1

REPORT INFORMATION
  Report Type: Spontaneous
  Country: DK (occurrence: DK)
  Receive Date: 20180508
  Receipt Date: 20210224
  Transmission Date: 20210419
  Serious: Yes (Other)
  Sender: FDA-Public Use
  Company Number: PHHY2017DK004268

PATIENT
  Age: 62 Year
  Sex: Male

DRUGS (4)
  1. TERBINAFINE. [Suspect]
     Active Substance: TERBINAFINE
     Dosage: 125 MG, BID (2 X 30?DAY COURSE)
     Route: 048
  2. ITRACONAZOLE. [Concomitant]
     Active Substance: ITRACONAZOLE
     Indication: BODY TINEA
     Dosage: 100 MG, BID
     Route: 048
  3. TERBINAFINE. [Suspect]
     Active Substance: TERBINAFINE
     Indication: BODY TINEA
     Dosage: UNK
     Route: 048
  4. TERBINAFINE. [Suspect]
     Active Substance: TERBINAFINE
     Dosage: 250 MG, QD, 2 X 30?DAY COURSES
     Route: 048

REACTIONS (3)
  - Pathogen resistance [Recovered/Resolved]
  - Drug resistance [Unknown]
  - Treatment failure [Unknown]
